FAERS Safety Report 6983975-6 (Version None)
Quarter: 2010Q3

REPORT INFORMATION
  Report Type: 
  Country: None (occurrence: None)
  Receive Date: 20100915
  Receipt Date: 20090428
  Transmission Date: 20110219
  Serious: No
  Sender: FDA-Public Use
  Company Number: US-WYE-H09159509

PATIENT
  Age: 69 Year
  Sex: Female

DRUGS (1)
  1. ADVIL LIQUI-GELS [Suspect]
     Dosage: 1 CAPSULE X 1
     Route: 048
     Dates: start: 20090412, end: 20090412

REACTIONS (2)
  - DYSPNOEA [None]
  - OESOPHAGEAL DISCOMFORT [None]
